FAERS Safety Report 9632833 (Version 1)
Quarter: 2013Q4

REPORT INFORMATION
  Report Type: Spontaneous
  Country: US (occurrence: US)
  Receive Date: 20131018
  Receipt Date: 20131018
  Transmission Date: 20140711
  Serious: Yes (Other)
  Sender: FDA-Public Use
  Company Number: US-ROCHE-1288991

PATIENT
  Sex: Female

DRUGS (1)
  1. BONIVA [Suspect]
     Indication: OSTEOPOROSIS
     Route: 065
     Dates: start: 200807, end: 201001

REACTIONS (4)
  - Low turnover osteopathy [Unknown]
  - Femur fracture [Unknown]
  - Anxiety [Unknown]
  - Emotional distress [Unknown]
